FAERS Safety Report 11455517 (Version 1)
Quarter: 2015Q3

REPORT INFORMATION
  Report Type: Other
  Country: US (occurrence: US)
  Receive Date: 20150903
  Receipt Date: 20150903
  Transmission Date: 20151125
  Serious: Yes (Death, Other)
  Sender: FDA-Public Use
  Company Number: US-SHIRE-US201511059

PATIENT
  Age: 86 Year
  Sex: Female
  Weight: 47.62 kg

DRUGS (1)
  1. PENTASA [Suspect]
     Active Substance: MESALAMINE
     Indication: PRODUCT USED FOR UNKNOWN INDICATION
     Dosage: 1000 MG, 3X/DAY:TID
     Route: 048
     Dates: start: 2013

REACTIONS (2)
  - Death [Fatal]
  - Cardiac disorder [Fatal]

NARRATIVE: CASE EVENT DATE: 201508
